FAERS Safety Report 4588247-5 (Version None)
Quarter: 2005Q1

REPORT INFORMATION
  Report Type: 
  Country: None (occurrence: None)
  Receive Date: 20050221
  Receipt Date: 20050208
  Transmission Date: 20050727
  Serious: Yes (Other)
  Sender: FDA-Public Use
  Company Number: US-ABBOTT-05P-163-0290286-00

PATIENT
  Sex: Female
  Weight: 109 kg

DRUGS (3)
  1. MERIDIA [Suspect]
     Indication: OBESITY
     Route: 048
     Dates: start: 20041021, end: 20050114
  2. IBUPROFEN [Concomitant]
     Indication: DRUG USE FOR UNKNOWN INDICATION
     Route: 048
  3. ACETAMINOPHEN [Concomitant]
     Indication: DRUG USE FOR UNKNOWN INDICATION
     Dosage: 1000 MG
     Route: 048

REACTIONS (17)
  - ABDOMINAL PAIN [None]
  - ALANINE AMINOTRANSFERASE INCREASED [None]
  - ASPARTATE AMINOTRANSFERASE INCREASED [None]
  - CHEST DISCOMFORT [None]
  - DYSPNOEA [None]
  - HEADACHE [None]
  - LYMPHOCYTE COUNT INCREASED [None]
  - MEAN CELL HAEMOGLOBIN CONCENTRATION DECREASED [None]
  - MEAN CELL HAEMOGLOBIN DECREASED [None]
  - MEAN CELL VOLUME DECREASED [None]
  - METABOLIC FUNCTION TEST ABNORMAL [None]
  - NAUSEA [None]
  - NEUTROPHIL PERCENTAGE DECREASED [None]
  - PAIN IN JAW [None]
  - RED BLOOD CELL COUNT INCREASED [None]
  - RED CELL DISTRIBUTION WIDTH INCREASED [None]
  - SINUS TACHYCARDIA [None]
